FAERS Safety Report 5272784-4 (Version None)
Quarter: 2007Q1

REPORT INFORMATION
  Report Type: 
  Country: None (occurrence: None)
  Receive Date: 20070322
  Receipt Date: 20070314
  Transmission Date: 20070707
  Serious: Yes (Hospitalization, Other)
  Sender: FDA-Public Use
  Company Number: IE-GLAXOSMITHKLINE-B0462918A

PATIENT
  Sex: Male

DRUGS (5)
  1. AVODART [Suspect]
     Dosage: .5MG PER DAY
     Route: 048
     Dates: start: 20070118
  2. DITROPAN [Suspect]
     Dosage: 2.5MG PER DAY
     Route: 048
     Dates: start: 20070118
  3. PROCHLORPERAZINE [Concomitant]
  4. PANTOPRAZOLE SODIUM [Concomitant]
  5. MOGADON [Concomitant]

REACTIONS (1)
  - HYPERTENSION [None]
